FAERS Safety Report 16597244 (Version 1)
Quarter: 2019Q3

REPORT INFORMATION
  Report Type: Spontaneous
  Country: US (occurrence: US)
  Receive Date: 20190718
  Receipt Date: 20190718
  Transmission Date: 20191004
  Serious: Yes (Other)
  Sender: FDA-Public Use
  Company Number: None

PATIENT
  Age: 32 Year

DRUGS (1)
  1. ERYTHROMYCIN. [Suspect]
     Active Substance: ERYTHROMYCIN
     Dates: start: 20190630, end: 20190630

REACTIONS (3)
  - Blindness [None]
  - Eye infection bacterial [None]
  - Eye ulcer [None]

NARRATIVE: CASE EVENT DATE: 20190701
